FAERS Safety Report 7737171-5 (Version None)
Quarter: 2011Q3

REPORT INFORMATION
  Report Type: 
  Country: None (occurrence: None)
  Receive Date: 20110908
  Receipt Date: 20110830
  Transmission Date: 20111222
  Serious: Yes (Hospitalization)
  Sender: FDA-Public Use
  Company Number: FR-ROCHE-800279

PATIENT
  Age: 80 Year
  Sex: Female

DRUGS (4)
  1. LEUCOVORIN CALCIUM [Concomitant]
  2. IMOVANE [Concomitant]
  3. IRINOTECAN HCL [Concomitant]
  4. AVASTIN [Suspect]
     Indication: COLON CANCER
     Route: 065
     Dates: start: 20110301

REACTIONS (1)
  - CONFUSIONAL STATE [None]
